FAERS Safety Report 24681792 (Version 3)
Quarter: 2025Q3

REPORT INFORMATION
  Report Type: Report from Study
  Country: CA (occurrence: CA)
  Receive Date: 20241130
  Receipt Date: 20250809
  Transmission Date: 20251021
  Serious: Yes (Death, Other)
  Sender: ALEXION PHARMACEUTICALS
  Company Number: CA-AstraZeneca-CH-00753491A

PATIENT
  Sex: Female

DRUGS (8)
  1. BENRALIZUMAB [Suspect]
     Active Substance: BENRALIZUMAB
     Indication: Asthma
  2. HYDROCHLOROTHIAZIDE [Concomitant]
     Active Substance: HYDROCHLOROTHIAZIDE
     Route: 065
  3. CITALOPRAM [Concomitant]
     Active Substance: CITALOPRAM
  4. LORAZEPAM [Concomitant]
     Active Substance: LORAZEPAM
  5. OLMESARTAN [Concomitant]
     Active Substance: OLMESARTAN
  6. BUDESONIDE [Concomitant]
     Active Substance: BUDESONIDE
  7. OLMESARTAN [Concomitant]
     Active Substance: OLMESARTAN
  8. BUDESONIDE [Concomitant]
     Active Substance: BUDESONIDE

REACTIONS (1)
  - Aortic dissection [Fatal]
